FAERS Safety Report 5819285-X (Version None)
Quarter: 2008Q3

REPORT INFORMATION
  Report Type: 
  Country: None (occurrence: None)
  Receive Date: 20080718
  Receipt Date: 20080702
  Transmission Date: 20090109
  Serious: Yes (Hospitalization)
  Sender: FDA-Public Use
  Company Number: DSA_32098_2008

PATIENT
  Sex: Female

DRUGS (5)
  1. LORAZEPAM [Suspect]
     Dosage: (ORAL)
     Route: 048
     Dates: start: 20080701, end: 20080701
  2. TREVILOR (TREVILOR RETARD - VENLAFAXINE HYDROCHLORIDE) (NOT SPECIFIED) [Suspect]
     Dosage: (ORAL)
     Route: 048
     Dates: start: 20080701, end: 20080701
  3. AMISULPRIDE (AMISULPRIDE) [Suspect]
     Dosage: (ORAL)
     Route: 048
     Dates: start: 20080701, end: 20080701
  4. LYRICA [Suspect]
     Dosage: (ORAL)
     Route: 048
     Dates: start: 20080701, end: 20080701
  5. VALORON N /00628301/ (VALORON NALOXONE HYDROCHLORIDE/TILIDINE HYDROCHL [Suspect]
     Dosage: (1500 MG 1X ORAL)
     Route: 048
     Dates: start: 20080701, end: 20080701

REACTIONS (6)
  - CARDIOVASCULAR INSUFFICIENCY [None]
  - COMA [None]
  - MULTIPLE DRUG OVERDOSE INTENTIONAL [None]
  - MYDRIASIS [None]
  - RESPIRATORY FAILURE [None]
  - SUICIDE ATTEMPT [None]
